FAERS Safety Report 8634421 (Version 2)
Quarter: 2012Q4

REPORT INFORMATION
  Report Type: 
  Country: FR (occurrence: FR)
  Receive Date: 20120626
  Receipt Date: 20120918
  Transmission Date: 20130627
  Serious: Yes (Hospitalization)
  Sender: FDA-Public Use
  Company Number: FR-PFIZER INC-2012150746

PATIENT
  Age: 47 Year
  Sex: Female

DRUGS (4)
  1. CORDARONE [Suspect]
     Indication: ARRHYTHMIA
     Dosage: 200 mg, daily
     Route: 048
     Dates: start: 20120319
  2. FLECAINE [Suspect]
     Indication: ATRIAL FIBRILLATION
     Dosage: 150 mg, daily
     Route: 048
     Dates: start: 20120316, end: 20120322
  3. FLECAINE [Suspect]
     Dosage: 200 mg, daily
     Route: 048
     Dates: start: 20120323, end: 20120405
  4. PREVISCAN [Suspect]
     Indication: THROMBOSIS PROPHYLAXIS
     Dosage: UNK
     Route: 048
     Dates: start: 20120316

REACTIONS (5)
  - Liver injury [Recovering/Resolving]
  - Asthenia [Unknown]
  - Gait disturbance [Unknown]
  - Cough [Unknown]
  - Chest discomfort [Unknown]
